FAERS Safety Report 20349174 (Version 1)
Quarter: 2022Q1

REPORT INFORMATION
  Report Type: Spontaneous
  Country: US (occurrence: US)
  Receive Date: 20220119
  Receipt Date: 20220119
  Transmission Date: 20220423
  Serious: Yes (Other)
  Sender: FDA-Public Use
  Company Number: US-AMGEN-USASP2022007636

PATIENT
  Age: 24 Year
  Sex: Female

DRUGS (2)
  1. OTEZLA [Suspect]
     Active Substance: APREMILAST
     Indication: Psoriatic arthropathy
     Dosage: UNK(10, 20 AND 30 TAKE AS DIRECTED)
     Route: 048
     Dates: start: 20211217
  2. TALTZ [Concomitant]
     Active Substance: IXEKIZUMAB
     Dosage: UNK

REACTIONS (1)
  - Psoriatic arthropathy [Unknown]
